FAERS Safety Report 9928255 (Version 1)
Quarter: 2014Q1

REPORT INFORMATION
  Report Type: Spontaneous
  Country: US (occurrence: None)
  Receive Date: 20140226
  Receipt Date: 20140226
  Transmission Date: 20141002
  Serious: Yes (Other)
  Sender: FDA-Public Use
  Company Number: None

PATIENT
  Age: 36 Year
  Sex: Female

DRUGS (1)
  1. VENLAFAXINE HCL [Suspect]
     Indication: DEPRESSION
     Dosage: VENLAFAXINE ONE DAILY ONCE DAILY TAKEN BY MOUTH
     Route: 048

REACTIONS (5)
  - Sleep terror [None]
  - Hyperhidrosis [None]
  - Dizziness [None]
  - Vision blurred [None]
  - Lethargy [None]
